FAERS Safety Report 7395302-3 (Version None)
Quarter: 2011Q2

REPORT INFORMATION
  Report Type: 
  Country: None (occurrence: None)
  Receive Date: 20110405
  Receipt Date: 20110404
  Transmission Date: 20111010
  Serious: Yes (Other)
  Sender: FDA-Public Use
  Company Number: US-PFIZER INC-2011074488

PATIENT
  Sex: Female
  Weight: 47.619 kg

DRUGS (3)
  1. TRAZODONE [Concomitant]
     Indication: DEPRESSION
     Dosage: 150MG IN MORNING AND 300MG AT NIGHT
     Route: 048
  2. CHANTIX [Suspect]
     Indication: SMOKING CESSATION THERAPY
     Dosage: UNK
     Route: 048
  3. CHANTIX [Suspect]
     Dosage: 0.5 MG, 1X/DAY
     Route: 048
     Dates: start: 20110301, end: 20110404

REACTIONS (6)
  - FATIGUE [None]
  - ASTHENIA [None]
  - SUICIDAL IDEATION [None]
  - DEPRESSED MOOD [None]
  - CONFUSIONAL STATE [None]
  - DIZZINESS [None]
